FAERS Safety Report 11359690 (Version 1)
Quarter: 2015Q3

REPORT INFORMATION
  Report Type: Report from Study
  Country: US (occurrence: US)
  Receive Date: 20150808
  Receipt Date: 20150808
  Transmission Date: 20151125
  Serious: No
  Sender: FDA-Public Use
  Company Number: PHEH2015US012002

PATIENT
  Age: 58 Year
  Sex: Female
  Weight: 70.3 kg

DRUGS (2)
  1. ASPIRIN. [Concomitant]
     Active Substance: ASPIRIN
     Indication: CARDIAC DISORDER
     Dosage: 325 MG/KG, QD
     Route: 048
     Dates: start: 20130601
  2. GLEEVEC [Suspect]
     Active Substance: IMATINIB MESYLATE
     Indication: CONTUSION
     Dosage: 400 MG/KG, QD
     Route: 048
     Dates: start: 20050101

REACTIONS (3)
  - Haematoma [Not Recovered/Not Resolved]
  - Haemorrhage [Not Recovered/Not Resolved]
  - Off label use [Unknown]

NARRATIVE: CASE EVENT DATE: 20050101
